FAERS Safety Report 13503313 (Version 1)
Quarter: 2017Q2

REPORT INFORMATION
  Report Type: Spontaneous
  Country: US (occurrence: US)
  Receive Date: 20170502
  Receipt Date: 20170502
  Transmission Date: 20170830
  Serious: Yes (Other)
  Sender: FDA-Public Use
  Company Number: None

PATIENT
  Age: 50 Year
  Sex: Female
  Weight: 112.5 kg

DRUGS (8)
  1. ANTACIDS [Concomitant]
     Active Substance: UNSPECIFIED INGREDIENT
  2. SUBOXONE [Suspect]
     Active Substance: BUPRENORPHINE HYDROCHLORIDE\NALOXONE HYDROCHLORIDE
     Indication: DEPENDENCE
     Dosage: ?          QUANTITY:1 TABLET(S);?
     Route: 060
     Dates: start: 20170418, end: 20170501
  3. AMITRIPTYLINE [Concomitant]
     Active Substance: AMITRIPTYLINE
  4. IBUPROFEN. [Concomitant]
     Active Substance: IBUPROFEN
  5. METAPROLIOL [Concomitant]
  6. XANAX [Concomitant]
     Active Substance: ALPRAZOLAM
  7. BENICAR [Concomitant]
     Active Substance: OLMESARTAN MEDOXOMIL
  8. FLEXURAL [Concomitant]
     Active Substance: CYCLOBENZAPRINE

REACTIONS (4)
  - Withdrawal syndrome [None]
  - Chills [None]
  - Hypertension [None]
  - Hyperhidrosis [None]

NARRATIVE: CASE EVENT DATE: 20170419
